FAERS Safety Report 6171019-8 (Version None)
Quarter: 2009Q2

REPORT INFORMATION
  Report Type: 
  Country: None (occurrence: None)
  Receive Date: 20090429
  Receipt Date: 20090422
  Transmission Date: 20091009
  Serious: No
  Sender: FDA-Public Use
  Company Number: KR-JNJFOC-20090405973

PATIENT
  Age: 91 Year
  Sex: Female

DRUGS (1)
  1. DURAGESIC-100 [Suspect]
     Indication: PAIN IN EXTREMITY
     Dosage: DOSE: ONCE EVERY 5 OR 6 DAYS
     Route: 062

REACTIONS (3)
  - HYPERSOMNIA [None]
  - MEDICATION ERROR [None]
  - PAIN [None]
